FAERS Safety Report 25280281 (Version 3)
Quarter: 2025Q3

REPORT INFORMATION
  Report Type: Spontaneous
  Country: EU (occurrence: EU)
  Receive Date: 20250507
  Receipt Date: 20250810
  Transmission Date: 20251020
  Serious: Yes (Other)
  Sender: ALEXION PHARMACEUTICALS
  Company Number: EU-AstraZeneca-CH-00862491A

PATIENT
  Age: 4 Year
  Sex: Female

DRUGS (1)
  1. SOLIRIS [Suspect]
     Active Substance: ECULIZUMAB
     Indication: Atypical haemolytic uraemic syndrome

REACTIONS (19)
  - Pulmonary haemorrhage [Unknown]
  - Streptococcal sepsis [Unknown]
  - Candida sepsis [Unknown]
  - Serratia sepsis [Unknown]
  - Generalised tonic-clonic seizure [Unknown]
  - Thrombocytopenia [Unknown]
  - Disseminated intravascular coagulation [Unknown]
  - Brain oedema [Unknown]
  - Upper gastrointestinal haemorrhage [Unknown]
  - Hemiparesis [Unknown]
  - Haemoglobin abnormal [Unknown]
  - Blood creatinine abnormal [Unknown]
  - Blood lactate dehydrogenase increased [Unknown]
  - Dysphagia [Unknown]
  - Aphasia [Unknown]
  - Hypertension [Unknown]
  - Central nervous system lesion [Unknown]
  - Endothelial dysfunction [Unknown]
  - Hypervolaemia [Unknown]
